FAERS Safety Report 7170806-7 (Version None)
Quarter: 2010Q4

REPORT INFORMATION
  Report Type: 
  Country: None (occurrence: None)
  Receive Date: 20101217
  Receipt Date: 20101209
  Transmission Date: 20110411
  Serious: Yes (Other)
  Sender: FDA-Public Use
  Company Number: JP-JNJFOC-20100900456

PATIENT
  Sex: Female
  Weight: 40 kg

DRUGS (10)
  1. DUROTEP MT PATCH [Suspect]
     Indication: PAIN
     Route: 062
  2. DUROTEP MT PATCH [Suspect]
     Route: 062
  3. PARIET [Concomitant]
     Route: 048
  4. MUCOSTA [Concomitant]
     Route: 048
  5. MAGLAX [Concomitant]
     Route: 048
  6. HOCHU-EKKI-TO [Concomitant]
     Route: 048
  7. ARICEPT [Concomitant]
     Route: 048
  8. ASPIRIN [Concomitant]
     Route: 048
  9. NOVAMIN [Concomitant]
     Route: 030
  10. NOVAMIN [Concomitant]
     Route: 030

REACTIONS (6)
  - DRUG PRESCRIBING ERROR [None]
  - INCORRECT DOSE ADMINISTERED [None]
  - MALAISE [None]
  - NAUSEA [None]
  - PYREXIA [None]
  - VOMITING [None]
